FAERS Safety Report 15454994 (Version 2)
Quarter: 2018Q4

REPORT INFORMATION
  Report Type: Report from Study
  Country: US (occurrence: US)
  Receive Date: 20181002
  Receipt Date: 20181106
  Transmission Date: 20190204
  Serious: Yes (Death)
  Sender: FDA-Public Use
  Company Number: US-BAYER-2018-181952

PATIENT
  Age: 69 Year
  Sex: Male

DRUGS (13)
  1. COMBIVENT [Concomitant]
     Active Substance: ALBUTEROL SULFATE\IPRATROPIUM BROMIDE
  2. LEVOTHYROXINE. [Concomitant]
     Active Substance: LEVOTHYROXINE
  3. NAMENDA [Concomitant]
     Active Substance: MEMANTINE HYDROCHLORIDE
  4. LACTULOSE. [Concomitant]
     Active Substance: LACTULOSE
  5. NORCO [Concomitant]
     Active Substance: ACETAMINOPHEN\HYDROCODONE BITARTRATE
  6. BETASERON [Suspect]
     Active Substance: INTERFERON BETA-1B
     Indication: MULTIPLE SCLEROSIS
     Dosage: 0.25 MG, QOD
     Route: 058
     Dates: start: 20151123
  7. NITROSTAT [Concomitant]
     Active Substance: NITROGLYCERIN
  8. OXYCODONE [Concomitant]
     Active Substance: OXYCODONE
  9. FLUDROCORTISONE [Concomitant]
     Active Substance: FLUDROCORTISONE
  10. DULOXETINE. [Concomitant]
     Active Substance: DULOXETINE
  11. PLAVIX [Concomitant]
     Active Substance: CLOPIDOGREL BISULFATE
  12. SIMVASTATIN. [Concomitant]
     Active Substance: SIMVASTATIN
  13. TRAZODONE [Concomitant]
     Active Substance: TRAZODONE HYDROCHLORIDE

REACTIONS (1)
  - Myocardial ischaemia [Fatal]

NARRATIVE: CASE EVENT DATE: 20180919
